FAERS Safety Report 8447730-2 (Version None)
Quarter: 2012Q2

REPORT INFORMATION
  Report Type: 
  Country: None (occurrence: None)
  Receive Date: 20120619
  Receipt Date: 20120608
  Transmission Date: 20120825
  Serious: Yes (Other)
  Sender: FDA-Public Use
  Company Number: US-MYLANLABS-2012S1011701

PATIENT
  Age: 58 Year
  Sex: Female
  Weight: 90.27 kg

DRUGS (9)
  1. ATORVASTATIN CALCIUM [Concomitant]
     Route: 048
  2. VITAMIN D [Concomitant]
     Route: 048
  3. PLAVIX [Suspect]
     Indication: CORONARY ARTERIAL STENT INSERTION
  4. LISINOPRIL [Concomitant]
     Route: 048
  5. ASPIRIN [Concomitant]
     Route: 048
  6. ALLOPURINOL [Concomitant]
     Indication: GOUT
     Route: 048
  7. CLOPIDOGREL [Suspect]
     Indication: CORONARY ARTERIAL STENT INSERTION
     Route: 048
     Dates: start: 20120101
  8. LANTUS [Concomitant]
     Indication: DIABETES MELLITUS
     Route: 058
  9. METFORMIN HCL [Concomitant]
     Indication: DIABETES MELLITUS
     Route: 048

REACTIONS (1)
  - GOUT [None]
